FAERS Safety Report 5723880-6 (Version None)
Quarter: 2008Q2

REPORT INFORMATION
  Report Type: 
  Country: None (occurrence: None)
  Receive Date: 20080428
  Receipt Date: 20080415
  Transmission Date: 20081010
  Serious: Yes (Hospitalization)
  Sender: FDA-Public Use
  Company Number: 2007BI010163

PATIENT
  Age: 43 Year
  Sex: Male

DRUGS (1)
  1. AVONEX [Suspect]
     Indication: MULTIPLE SCLEROSIS
     Dosage: 30 UG;QW;IM
     Route: 030
     Dates: start: 20050621

REACTIONS (8)
  - AMNESIA [None]
  - ANXIETY [None]
  - DEEP VEIN THROMBOSIS [None]
  - INTERVERTEBRAL DISC PROTRUSION [None]
  - LOSS OF EMPLOYMENT [None]
  - NEUROFIBROMA [None]
  - OEDEMA PERIPHERAL [None]
  - WALKING AID USER [None]
